FAERS Safety Report 22966399 (Version 3)
Quarter: 2024Q1

REPORT INFORMATION
  Report Type: Report from Study
  Country: US (occurrence: US)
  Receive Date: 20230921
  Receipt Date: 20240327
  Transmission Date: 20240410
  Serious: No
  Sender: FDA-Public Use
  Company Number: US-AGIOS-2309US03478

PATIENT
  Sex: Female

DRUGS (1)
  1. MITAPIVAT [Suspect]
     Active Substance: MITAPIVAT
     Indication: Pyruvate kinase deficiency anaemia
     Dosage: 50 MILLIGRAM
     Route: 065
     Dates: start: 20221004

REACTIONS (4)
  - Insomnia [Unknown]
  - Myalgia [Unknown]
  - Acne [Unknown]
  - Pain [Not Recovered/Not Resolved]
